FAERS Safety Report 7289981-9 (Version None)
Quarter: 2011Q1

REPORT INFORMATION
  Report Type: 
  Country: None (occurrence: None)
  Receive Date: 20110210
  Receipt Date: 20110210
  Transmission Date: 20110831
  Serious: No
  Sender: FDA-Public Use
  Company Number: None

PATIENT

DRUGS (1)
  1. POTASSIUM IODINE 130 MG FDA [Suspect]

REACTIONS (1)
  - MEDICATION ERROR [None]
